FAERS Safety Report 8365276-7 (Version None)
Quarter: 2012Q2

REPORT INFORMATION
  Report Type: 
  Country: None (occurrence: None)
  Receive Date: 20120515
  Receipt Date: 20120511
  Transmission Date: 20120825
  Serious: Yes (Other)
  Sender: FDA-Public Use
  Company Number: ADR-2012-00191

PATIENT
  Sex: Male

DRUGS (2)
  1. LIORESAL [Suspect]
     Indication: CEREBRAL PALSY
     Dosage: 750 MCG/DAY
  2. LIORESAL [Suspect]
     Indication: MUSCLE SPASTICITY
     Dosage: 750 MCG/DAY

REACTIONS (5)
  - IMPLANT SITE SWELLING [None]
  - FALL [None]
  - DEVICE RELATED INFECTION [None]
  - SUTURE RUPTURE [None]
  - IMPLANT SITE ERYTHEMA [None]
